FAERS Safety Report 9345960 (Version 3)
Quarter: 2013Q3

REPORT INFORMATION
  Report Type: Spontaneous
  Country: AT (occurrence: AT)
  Receive Date: 20130613
  Receipt Date: 20130824
  Transmission Date: 20140515
  Serious: Yes (Other)
  Sender: FDA-Public Use
  Company Number: AT-ROCHE-1233976

PATIENT
  Age: 54 Year
  Sex: Female

DRUGS (9)
  1. TRASTUZUMAB [Suspect]
     Indication: METASTATIC NEOPLASM
     Route: 065
     Dates: start: 201007, end: 201101
  2. TRASTUZUMAB [Suspect]
     Route: 065
     Dates: start: 201110, end: 201211
  3. VINORELBINE [Suspect]
     Indication: METASTATIC NEOPLASM
     Route: 065
     Dates: start: 201110, end: 201211
  4. EPIRUBICIN [Suspect]
     Indication: METASTATIC NEOPLASM
     Dosage: CUMULATIVE DOSE OF 1200 MG
     Route: 065
     Dates: start: 200909, end: 201005
  5. DOCETAXEL [Suspect]
     Indication: METASTATIC NEOPLASM
     Route: 065
     Dates: start: 200909, end: 201005
  6. DOCETAXEL [Suspect]
     Route: 065
  7. PEGYLATED LIPOSOMAL DOXORUBICIN [Suspect]
     Indication: METASTATIC NEOPLASM
     Route: 065
     Dates: start: 201007, end: 201101
  8. ANASTROZOLE [Suspect]
     Indication: METASTATIC NEOPLASM
     Route: 048
     Dates: start: 201101, end: 201110
  9. FULVESTRANT [Suspect]
     Indication: METASTATIC NEOPLASM
     Route: 065
     Dates: start: 201110, end: 201211

REACTIONS (3)
  - Metastases to liver [Unknown]
  - Metastases to skin [Unknown]
  - Metastases to lymph nodes [Unknown]
